FAERS Safety Report 10061921 (Version 1)
Quarter: 2014Q2

REPORT INFORMATION
  Report Type: Spontaneous
  Country: FR (occurrence: FR)
  Receive Date: 20140407
  Receipt Date: 20140407
  Transmission Date: 20141212
  Serious: Yes (Death)
  Sender: FDA-Public Use
  Company Number: FR-SA-2014SA037283

PATIENT
  Age: 25 Year
  Sex: Female

DRUGS (1)
  1. LOVENOX [Suspect]
     Indication: PRODUCT USED FOR UNKNOWN INDICATION
     Route: 065
     Dates: start: 20140219, end: 20140311

REACTIONS (2)
  - Cardiac arrest [Fatal]
  - Pulmonary embolism [Fatal]
